FAERS Safety Report 24550609 (Version 1)
Quarter: 2024Q4

REPORT INFORMATION
  Report Type: Spontaneous
  Country: JO (occurrence: JO)
  Receive Date: 20241025
  Receipt Date: 20241025
  Transmission Date: 20250114
  Serious: No
  Sender: JAZZ
  Company Number: JO-JAZZ PHARMACEUTICALS-2024-JO-017348

PATIENT
  Sex: Female

DRUGS (1)
  1. DEFIBROTIDE SODIUM [Suspect]
     Active Substance: DEFIBROTIDE SODIUM
     Indication: Venoocclusive disease
     Dosage: 6.25 MILLIGRAM/KILOGRAM, EVERY 6 HOURS
     Route: 042
     Dates: start: 20240918

REACTIONS (1)
  - Off label use [Unknown]
